FAERS Safety Report 8204726-3 (Version None)
Quarter: 2012Q1

REPORT INFORMATION
  Report Type: 
  Country: None (occurrence: None)
  Receive Date: 20120309
  Receipt Date: 20120227
  Transmission Date: 20120608
  Serious: Yes (Life-Threatening, Other)
  Sender: FDA-Public Use
  Company Number: 2012P1008481

PATIENT
  Age: 21 Year
  Sex: Female

DRUGS (4)
  1. EPINEPHRINE [Concomitant]
  2. LIDOCAINE AND EPINEPHRINE [Suspect]
     Indication: LOCAL ANAESTHESIA
  3. ATRACURIUM [Concomitant]
  4. PROPOFOL [Concomitant]

REACTIONS (7)
  - VENTRICULAR FIBRILLATION [None]
  - CARDIOMYOPATHY [None]
  - HYPOTENSION [None]
  - KOUNIS SYNDROME [None]
  - ELECTROCARDIOGRAM ST SEGMENT ELEVATION [None]
  - ALLERGIC MYOCARDITIS [None]
  - PULMONARY OEDEMA [None]
